FAERS Safety Report 4755651-1 (Version None)
Quarter: 2005Q3

REPORT INFORMATION
  Report Type: 
  Country: None (occurrence: None)
  Receive Date: 20050830
  Receipt Date: 20050615
  Transmission Date: 20060218
  Serious: No
  Sender: FDA-Public Use
  Company Number: US-BRISTOL-MYERS SQUIBB COMPANY-13004619

PATIENT
  Sex: Male

DRUGS (5)
  1. ABILIFY [Suspect]
     Dosage: DOSAGE: INCREASED TO 15MG AT BEDTIME IN JANUARY 2004
     Route: 048
     Dates: start: 20031201
  2. TOPAMAX [Concomitant]
  3. LEXAPRO [Concomitant]
  4. CLARITIN [Concomitant]
  5. TRAZODONE HCL [Concomitant]

REACTIONS (1)
  - TARDIVE DYSKINESIA [None]
